FAERS Safety Report 4408384-5 (Version None)
Quarter: 2004Q3

REPORT INFORMATION
  Report Type: 
  Country: None (occurrence: None)
  Receive Date: 20040722
  Receipt Date: 20040709
  Transmission Date: 20050211
  Serious: Yes (Hospitalization)
  Sender: FDA-Public Use
  Company Number: FR-SHR-04-023970

PATIENT
  Age: 71 Year
  Sex: Female

DRUGS (16)
  1. SOTALOL HCL [Suspect]
     Dosage: 40 MG, 1X/DAY (80 MG TABLET), ORAL
     Route: 048
     Dates: end: 20040112
  2. SOTALOL HCL [Suspect]
     Dosage: 40 MG, 1X/DAY (80 MG TABLET), ORAL
     Route: 048
     Dates: start: 20040101
  3. DIGOXIN [Concomitant]
  4. VENTOLIN [Concomitant]
  5. ALDALIX [Concomitant]
  6. SEREVENT [Concomitant]
  7. BECLOTAIDE [Concomitant]
  8. MOTILIUM ^BYK GULDEN^ (DOMEPERIDONE) [Concomitant]
  9. VALIUM/NET (DIAZEPAM) [Concomitant]
  10. PROTHIADEN [Concomitant]
  11. DIPROSONE [Concomitant]
  12. CIRKAN (PANCREAS EXTRACT, HESPERIDIN METHYL CHALCONE, HERBAL EXTRACTS [Concomitant]
  13. LOCATOP (DESONIDE) [Concomitant]
  14. NEXIUM [Concomitant]
  15. EUPHYLLINE [Concomitant]
  16. FONZYLANE (BUFLOMEDIL HYDROCHLORIDE) [Concomitant]

REACTIONS (3)
  - CARDIOPULMONARY FAILURE [None]
  - CHRONIC OBSTRUCTIVE AIRWAYS DISEASE EXACERBATED [None]
  - OEDEMA PERIPHERAL [None]
